FAERS Safety Report 18870286 (Version 3)
Quarter: 2021Q1

REPORT INFORMATION
  Report Type: Spontaneous
  Country: US (occurrence: US)
  Receive Date: 20210210
  Receipt Date: 20210312
  Transmission Date: 20210420
  Serious: No
  Sender: FDA-Public Use
  Company Number: US-APOTEX-2021AP002481

PATIENT
  Sex: Female

DRUGS (3)
  1. AZELASTINE HCL NASAL SOLUTION [Suspect]
     Active Substance: AZELASTINE HYDROCHLORIDE
     Indication: NASAL CONGESTION
     Dosage: 1 SPRAYS IN EACH NOSTRIL, Q.H.S.
     Route: 045
  2. FLONASE [Concomitant]
     Active Substance: FLUTICASONE PROPIONATE
     Indication: NASAL CONGESTION
     Dosage: UNK UNK, QD
     Route: 065
  3. AZELASTINE HCL NASAL SOLUTION [Suspect]
     Active Substance: AZELASTINE HYDROCHLORIDE
     Dosage: UNK UNK, BID
     Route: 045

REACTIONS (2)
  - Product delivery mechanism issue [Unknown]
  - Inappropriate schedule of product administration [Unknown]
